FAERS Safety Report 8448122-2 (Version None)
Quarter: 2012Q2

REPORT INFORMATION
  Report Type: 
  Country: None (occurrence: None)
  Receive Date: 20120531
  Receipt Date: 20120518
  Transmission Date: 20120825
  Serious: Yes (Hospitalization)
  Sender: FDA-Public Use
  Company Number: 2012PROUSA01439

PATIENT
  Age: 79 Year
  Sex: Male
  Weight: 81.6 kg

DRUGS (20)
  1. PROVENGE [Suspect]
     Indication: PROSTATE CANCER METASTATIC
     Dosage: 250 ML, SINGLE, INTRAVENOUS
     Route: 042
     Dates: start: 20120503, end: 20120503
  2. PROVENGE [Suspect]
     Indication: PROSTATE CANCER METASTATIC
     Dosage: 250 ML, SINGLE, INTRAVENOUS
     Route: 042
     Dates: start: 20120517, end: 20120517
  3. ADVAIR HFA [Concomitant]
  4. FOSAMAX [Concomitant]
  5. GLUCOTROL [Concomitant]
  6. AMLODIPINE [Concomitant]
  7. PROSCAR [Concomitant]
  8. COLACE (DOCUSATE SODIUM) [Concomitant]
  9. BENADRYL [Concomitant]
  10. OSCAL (CALCIUM CARBONATE) [Concomitant]
  11. LASIX [Concomitant]
  12. FLONASE [Concomitant]
  13. TAMSULOSIN HCL [Concomitant]
  14. CARVEDILOL [Concomitant]
  15. BICALUTAMIDE [Concomitant]
  16. SENNA-MINT WAF [Concomitant]
  17. LACTULOSE [Concomitant]
  18. ATORVASTATIN [Concomitant]
  19. HALFPRIN (ACETYLSALICYLIC ACID) [Concomitant]
  20. PROVENGE [Suspect]

REACTIONS (1)
  - MYOCARDIAL INFARCTION [None]
